FAERS Safety Report 23566215 (Version 3)
Quarter: 2024Q1

REPORT INFORMATION
  Report Type: Spontaneous
  Country: ZA (occurrence: ZA)
  Receive Date: 20240226
  Receipt Date: 20240314
  Transmission Date: 20240410
  Serious: Yes (Hospitalization)
  Sender: FDA-Public Use
  Company Number: ZA-BAXTER-2024BAX013098

PATIENT
  Age: 6 Year
  Sex: Male
  Weight: 13.8 kg

DRUGS (11)
  1. DIANEAL [Suspect]
     Active Substance: CALCIUM CHLORIDE\DEXTROSE\MAGNESIUM CHLORIDE\SODIUM CHLORIDE\SODIUM LACTATE
     Dosage: 7000 (UNIT NOT REPORTED) TOTAL
     Route: 033
     Dates: end: 20240213
  2. SENSIPAR [Concomitant]
     Active Substance: CINACALCET HYDROCHLORIDE
     Indication: Blood parathyroid hormone increased
     Dosage: 10 MG DAILY
     Route: 048
     Dates: start: 20210722
  3. CALCIUM CARBONATE\CALCIUM PHOSPHATE\KAOLIN\MAG CARBONATE\MAG HYDROXIDE [Concomitant]
     Active Substance: CALCIUM CARBONATE\CALCIUM PHOSPHATE\KAOLIN\MAG CARBONATE\MAG HYDROXIDE\MAG OXIDE
     Indication: Blood phosphorus
     Dosage: ONE THREE TIME IN A DAY (TDS)
     Route: 048
     Dates: start: 20190703, end: 20240204
  4. One alpha vitamin D [Concomitant]
     Indication: Blood calcium
     Dosage: DAILY
     Route: 048
     Dates: start: 20231011, end: 20240204
  5. One alpha vitamin D [Concomitant]
     Indication: Blood parathyroid hormone
  6. ASPIRIN [Concomitant]
     Active Substance: ASPIRIN
     Indication: Prophylaxis
     Dosage: DAILY
     Route: 048
     Dates: start: 20230427
  7. FOLATE SODIUM [Concomitant]
     Active Substance: FOLATE SODIUM
     Indication: Renal failure
     Dosage: DAILY
     Route: 048
     Dates: start: 20200723
  8. Amlol [Concomitant]
     Indication: Hypertension
     Dosage: THREE TIME A DAY (TDS)
     Route: 048
     Dates: start: 20230524
  9. ARANESP [Concomitant]
     Active Substance: DARBEPOETIN ALFA
     Indication: Anaemia
     Dosage: WEEKLY
     Route: 058
     Dates: start: 20230922
  10. IRON SUCROSE [Concomitant]
     Active Substance: IRON SUCROSE
     Indication: Iron deficiency
     Dosage: MONTHLY
     Route: 042
     Dates: start: 20230816
  11. LANOXIN [Concomitant]
     Active Substance: DIGOXIN
     Dosage: 0.5 DAILY
     Route: 048
     Dates: start: 20230519

REACTIONS (8)
  - Hypercalcaemia [Recovered/Resolved with Sequelae]
  - Decreased appetite [Recovering/Resolving]
  - Ocular hyperaemia [Recovering/Resolving]
  - Lethargy [Recovering/Resolving]
  - Nausea [Recovering/Resolving]
  - Muscle twitching [Recovering/Resolving]
  - Product availability issue [Unknown]
  - Therapy interrupted [Unknown]
